FAERS Safety Report 5313576-7 (Version None)
Quarter: 2007Q2

REPORT INFORMATION
  Report Type: 
  Country: None (occurrence: None)
  Receive Date: 20070425
  Receipt Date: 20070416
  Transmission Date: 20071010
  Serious: Yes (Death)
  Sender: FDA-Public Use
  Company Number: CFNTY-104

PATIENT
  Age: 83 Year
  Sex: Female

DRUGS (2)
  1. CEFDITOREN PIVOXIL 800MG [Suspect]
     Indication: RESPIRATORY TRACT INFECTION
     Dosage: P.O.
     Route: 048
     Dates: start: 20070319, end: 20070322
  2. MEDROL [Concomitant]

REACTIONS (2)
  - ACUTE HEPATIC FAILURE [None]
  - MULTI-ORGAN FAILURE [None]
